FAERS Safety Report 4641332-1 (Version None)
Quarter: 2005Q2

REPORT INFORMATION
  Report Type: 
  Country: None (occurrence: None)
  Receive Date: 20050419
  Receipt Date: 20050406
  Transmission Date: 20051028
  Serious: Yes (Hospitalization)
  Sender: FDA-Public Use
  Company Number: 05P-056-0296831-00

PATIENT
  Age: 89 Year
  Sex: Female
  Weight: 55 kg

DRUGS (10)
  1. BIAXIN [Suspect]
     Indication: BRONCHITIS ACUTE
     Dosage: 1 DOSAGE FORMS, 2 IN 1 D, PER ORAL
     Route: 048
     Dates: start: 20050225, end: 20050308
  2. ACENOCOUMAROL (ACENOCOUMAROL) [Suspect]
     Indication: ATRIAL FIBRILLATION
     Dosage: 0.5 DOSAGE FORMS, 1 IN 1 D, PER ORAL
     Route: 048
     Dates: end: 20050306
  3. ACENOCOUMAROL (ACENOCOUMAROL) [Suspect]
     Indication: ATRIAL FLUTTER
     Dosage: 0.5 DOSAGE FORMS, 1 IN 1 D, PER ORAL
     Route: 048
     Dates: end: 20050306
  4. FUROSEMIDE [Concomitant]
  5. ENALAPRIL MALEATE [Concomitant]
  6. BISOPROL HEMIFUMARATE [Concomitant]
  7. HYDROXYCARBAMIDE [Concomitant]
  8. PREDNISOLONE [Concomitant]
  9. SYMBICORT [Concomitant]
  10. NOCTRAN 10 [Concomitant]

REACTIONS (8)
  - ANAEMIA [None]
  - DRUG INTERACTION [None]
  - HAEMATOMA [None]
  - HYPOTENSION [None]
  - PALLOR [None]
  - PELVIC HAEMATOMA [None]
  - PROTHROMBIN LEVEL DECREASED [None]
  - THERAPY NON-RESPONDER [None]
